FAERS Safety Report 14636514 (Version 2)
Quarter: 2018Q1

REPORT INFORMATION
  Report Type: Spontaneous
  Country: US (occurrence: US)
  Receive Date: 20180314
  Receipt Date: 20180323
  Transmission Date: 20180509
  Serious: No
  Sender: FDA-Public Use
  Company Number: US-009507513-1802USA013251

PATIENT

DRUGS (1)
  1. ZETIA [Suspect]
     Active Substance: EZETIMIBE
     Route: 048

REACTIONS (2)
  - Physical product label issue [Unknown]
  - Circumstance or information capable of leading to medication error [Unknown]
